FAERS Safety Report 5967957-9 (Version None)
Quarter: 2008Q4

REPORT INFORMATION
  Report Type: 
  Country: None (occurrence: None)
  Receive Date: 20081120
  Receipt Date: 20081120
  Transmission Date: 20090506
  Serious: No
  Sender: FDA-Public Use
  Company Number: None

PATIENT
  Sex: Male
  Weight: 75.2971 kg

DRUGS (5)
  1. SALSALATE TABLETS, USP, 500MG [Suspect]
     Indication: OSTEOARTHRITIS
     Dosage: 2 TABLETS TWICE DAILY
  2. LISINIPRIL [Concomitant]
  3. CALCIUM [Concomitant]
  4. VITAMIN E [Concomitant]
  5. ADALAT [Concomitant]

REACTIONS (2)
  - RASH [None]
  - URTICARIA [None]
